FAERS Safety Report 10470536 (Version 2)
Quarter: 2014Q4

REPORT INFORMATION
  Report Type: Spontaneous
  Country: US (occurrence: US)
  Receive Date: 20140923
  Receipt Date: 20141002
  Transmission Date: 20150528
  Serious: No
  Sender: FDA-Public Use
  Company Number: US-009507513-1409USA011122

PATIENT
  Sex: Female

DRUGS (1)
  1. IMPLANON [Suspect]
     Active Substance: ETONOGESTREL
     Indication: CONTRACEPTION
     Dosage: ONE ROD / EVERY THREE YEARS
     Route: 059
     Dates: start: 20121019, end: 20140919

REACTIONS (7)
  - Device difficult to use [Recovered/Resolved]
  - Scar [Unknown]
  - Device breakage [Recovered/Resolved]
  - Implant site fibrosis [Unknown]
  - Metrorrhagia [Unknown]
  - Suture insertion [Unknown]
  - Incision site complication [Unknown]

NARRATIVE: CASE EVENT DATE: 20140919
